FAERS Safety Report 14026093 (Version 2)
Quarter: 2018Q1

REPORT INFORMATION
  Report Type: Spontaneous
  Country: JP (occurrence: JP)
  Receive Date: 20170929
  Receipt Date: 20180108
  Transmission Date: 20180508
  Serious: Yes (Hospitalization, Other)
  Sender: FDA-Public Use
  Company Number: JP-REGENERON PHARMACEUTICALS, INC.-2017-23034

PATIENT

DRUGS (31)
  1. EYLEA [Suspect]
     Active Substance: AFLIBERCEPT
     Dosage: 0.05 ML, ONCE , LEFT EYE) IN TOTAL 26 INJECTIONS RECEIVED.
     Route: 031
     Dates: start: 20170324, end: 20170324
  2. EYLEA [Suspect]
     Active Substance: AFLIBERCEPT
     Dosage: 0.05 ML, ONCE , LEFT EYE) IN TOTAL 26 INJECTIONS RECEIVED.
     Route: 031
     Dates: start: 20170728, end: 20170728
  3. MYDRIN P [Concomitant]
     Active Substance: PHENYLEPHRINE HYDROCHLORIDE\TROPICAMIDE
     Indication: PRODUCT USED FOR UNKNOWN INDICATION
     Dosage: UNK, QD, LEFT EYE
     Dates: start: 201401
  4. EYLEA [Suspect]
     Active Substance: AFLIBERCEPT
     Dosage: 0.05 ML, ONCE , LEFT EYE) IN TOTAL 26 INJECTIONS RECEIVED.
     Route: 031
     Dates: start: 20140307, end: 20140307
  5. EYLEA [Suspect]
     Active Substance: AFLIBERCEPT
     Dosage: 0.05 ML, ONCE , LEFT EYE) IN TOTAL 26 INJECTIONS RECEIVED.
     Route: 031
     Dates: start: 20141024, end: 20141024
  6. EYLEA [Suspect]
     Active Substance: AFLIBERCEPT
     Dosage: 0.05 ML, ONCE , LEFT EYE) IN TOTAL 26 INJECTIONS RECEIVED.
     Route: 031
     Dates: start: 20141219, end: 20141219
  7. EYLEA [Suspect]
     Active Substance: AFLIBERCEPT
     Dosage: 0.05 ML, ONCE , LEFT EYE) IN TOTAL 26 INJECTIONS RECEIVED.
     Route: 031
     Dates: start: 20150612, end: 20150612
  8. EYLEA [Suspect]
     Active Substance: AFLIBERCEPT
     Dosage: 0.05 ML, ONCE , LEFT EYE) IN TOTAL 26 INJECTIONS RECEIVED.
     Route: 031
     Dates: start: 20160513, end: 20160513
  9. CRAVIT [Concomitant]
     Active Substance: LEVOFLOXACIN
     Indication: PRODUCT USED FOR UNKNOWN INDICATION
     Dosage: UNK UNK, QID, LEFT EYE
     Dates: start: 201401
  10. IODINE                             /00080001/ [Concomitant]
     Indication: EYE IRRIGATION
     Dosage: UNK, LEFT EYE
     Dates: start: 201401
  11. EYLEA [Suspect]
     Active Substance: AFLIBERCEPT
     Dosage: 0.05 ML, ONCE , LEFT EYE) IN TOTAL 26 INJECTIONS RECEIVED.
     Route: 031
     Dates: start: 20151002, end: 20151002
  12. EYLEA [Suspect]
     Active Substance: AFLIBERCEPT
     Dosage: 0.05 ML, ONCE , LEFT EYE) IN TOTAL 26 INJECTIONS RECEIVED.
     Route: 031
     Dates: start: 20170623, end: 20170623
  13. EYLEA [Suspect]
     Active Substance: AFLIBERCEPT
     Dosage: 0.05 ML, ONCE , LEFT EYE) IN TOTAL 26 INJECTIONS RECEIVED.
     Route: 031
     Dates: start: 20140411, end: 20140411
  14. EYLEA [Suspect]
     Active Substance: AFLIBERCEPT
     Dosage: 0.05 ML, ONCE , LEFT EYE) IN TOTAL 26 INJECTIONS RECEIVED.
     Route: 031
     Dates: start: 20140606, end: 20140606
  15. EYLEA [Suspect]
     Active Substance: AFLIBERCEPT
     Dosage: 0.05 ML, ONCE , LEFT EYE) IN TOTAL 26 INJECTIONS RECEIVED.
     Route: 031
     Dates: start: 20140815, end: 20140815
  16. EYLEA [Suspect]
     Active Substance: AFLIBERCEPT
     Dosage: 0.05 ML, ONCE , LEFT EYE) IN TOTAL 26 INJECTIONS RECEIVED.
     Route: 031
     Dates: start: 20151127, end: 20151127
  17. EYLEA [Suspect]
     Active Substance: AFLIBERCEPT
     Dosage: 0.05 ML, ONCE , LEFT EYE) IN TOTAL 26 INJECTIONS RECEIVED.
     Route: 031
     Dates: start: 20160122, end: 20160122
  18. EYLEA [Suspect]
     Active Substance: AFLIBERCEPT
     Dosage: 0.05 ML, ONCE , LEFT EYE) IN TOTAL 26 INJECTIONS RECEIVED.
     Route: 031
     Dates: start: 20160408, end: 20160408
  19. EYLEA [Suspect]
     Active Substance: AFLIBERCEPT
     Dosage: 0.05 ML, ONCE , LEFT EYE) IN TOTAL 26 INJECTIONS RECEIVED.
     Route: 031
     Dates: start: 20160826, end: 20160826
  20. EYLEA [Suspect]
     Active Substance: AFLIBERCEPT
     Dosage: 0.05 ML, ONCE , LEFT EYE) IN TOTAL 26 INJECTIONS RECEIVED.
     Route: 031
     Dates: start: 20160923, end: 20160923
  21. EYLEA [Suspect]
     Active Substance: AFLIBERCEPT
     Dosage: 0.05 ML, ONCE , LEFT EYE) IN TOTAL 26 INJECTIONS RECEIVED.
     Route: 031
     Dates: start: 20161216, end: 20161216
  22. EYLEA [Suspect]
     Active Substance: AFLIBERCEPT
     Dosage: 0.05 ML, ONCE , LEFT EYE) IN TOTAL 26 INJECTIONS RECEIVED.
     Route: 031
     Dates: start: 20170519, end: 20170519
  23. PLETAAL [Concomitant]
     Active Substance: CILOSTAZOL
     Indication: PRODUCT USED FOR UNKNOWN INDICATION
  24. XYLOCAINE [Concomitant]
     Active Substance: LIDOCAINE HYDROCHLORIDE
     Indication: PRODUCT USED FOR UNKNOWN INDICATION
     Dosage: UNK, LEFT EYE
     Dates: start: 201401
  25. EYLEA [Suspect]
     Active Substance: AFLIBERCEPT
     Indication: AGE-RELATED MACULAR DEGENERATION
     Dosage: 0.05 ML, ONCE , LEFT EYE) IN TOTAL 26 INJECTIONS RECEIVED.
     Route: 031
     Dates: start: 20140131, end: 20140131
  26. EYLEA [Suspect]
     Active Substance: AFLIBERCEPT
     Dosage: 0.05 ML, ONCE , LEFT EYE) IN TOTAL 26 INJECTIONS RECEIVED.
     Route: 031
     Dates: start: 20160304, end: 20160304
  27. EYLEA [Suspect]
     Active Substance: AFLIBERCEPT
     Dosage: 0.05 ML, ONCE , LEFT EYE) IN TOTAL 26 INJECTIONS RECEIVED.
     Route: 031
     Dates: start: 20161028, end: 20161028
  28. EYLEA [Suspect]
     Active Substance: AFLIBERCEPT
     Dosage: 0.05 ML, ONCE , LEFT EYE) IN TOTAL 26 INJECTIONS RECEIVED.
     Route: 031
     Dates: start: 20170203, end: 20170203
  29. EYLEA [Suspect]
     Active Substance: AFLIBERCEPT
     Dosage: 0.05 ML, ONCE , LEFT EYE) IN TOTAL 26 INJECTIONS RECEIVED.
     Route: 031
     Dates: start: 20150213, end: 20150213
  30. EYLEA [Suspect]
     Active Substance: AFLIBERCEPT
     Dosage: 0.05 ML, ONCE , LEFT EYE) IN TOTAL 26 INJECTIONS RECEIVED.
     Route: 031
     Dates: start: 20150417, end: 20150417
  31. EYLEA [Suspect]
     Active Substance: AFLIBERCEPT
     Dosage: 0.05 ML, ONCE , LEFT EYE) IN TOTAL 26 INJECTIONS RECEIVED.
     Route: 031
     Dates: start: 20150807, end: 20150807

REACTIONS (1)
  - Cerebral haemorrhage [Recovering/Resolving]

NARRATIVE: CASE EVENT DATE: 20170728
